FAERS Safety Report 5178853-1 (Version None)
Quarter: 2006Q4

REPORT INFORMATION
  Report Type: 
  Country: None (occurrence: None)
  Receive Date: 20061208
  Receipt Date: 20061201
  Transmission Date: 20070319
  Serious: Yes (Other)
  Sender: FDA-Public Use
  Company Number: 2006148503

PATIENT
  Age: 42 Year
  Sex: Female
  Weight: 72.5755 kg

DRUGS (5)
  1. DETROL LA [Suspect]
     Indication: BLADDER PAIN
     Dosage: 4 MG (4 MG, 1 IN 1 D);
     Dates: start: 20061128
  2. DETROL LA [Suspect]
     Indication: BLADDER SPASM
     Dosage: 4 MG (4 MG, 1 IN 1 D);
     Dates: start: 20061128
  3. DETROL LA [Suspect]
     Indication: CYSTITIS NONINFECTIVE
     Dosage: 4 MG (4 MG, 1 IN 1 D);
     Dates: start: 20061128
  4. AVAPRO [Concomitant]
  5. IBUPROFEN [Concomitant]

REACTIONS (1)
  - BLOOD PRESSURE INCREASED [None]
